FAERS Safety Report 19321537 (Version 2)
Quarter: 2021Q2

REPORT INFORMATION
  Report Type: Spontaneous
  Country: IN (occurrence: IN)
  Receive Date: 20210527
  Receipt Date: 20210615
  Transmission Date: 20210717
  Serious: Yes (Other)
  Sender: FDA-Public Use
  Company Number: IN-PFIZER INC-2019359734

PATIENT
  Age: 55 Year
  Sex: Female

DRUGS (6)
  1. VITAMIN B12 [Concomitant]
     Active Substance: CYANOCOBALAMIN
     Dosage: 1 DF, UNK (1CAP X 1M)
  2. FEMARA [Concomitant]
     Active Substance: LETROZOLE
     Dosage: 2.5 MG, 1X/DAY, OD X 1M
  3. PALBACE [Suspect]
     Active Substance: PALBOCICLIB
     Indication: BREAST CANCER METASTATIC
     Dosage: 125 MG, 1X/DAY (FOR 3MONTHS)
     Route: 048
     Dates: start: 20180329
  4. PALBACE [Suspect]
     Active Substance: PALBOCICLIB
     Dosage: 100 MG
     Route: 048
  5. VITAMIN D1 [Concomitant]
     Active Substance: VITAMIN D NOS
     Dosage: UNK (6  X 1M)
  6. CCM [Concomitant]
     Dosage: UNK (BD X 1M)

REACTIONS (3)
  - Febrile neutropenia [Unknown]
  - Fatigue [Unknown]
  - Neutrophil count decreased [Unknown]
